FAERS Safety Report 15968257 (Version 1)
Quarter: 2019Q1

REPORT INFORMATION
  Report Type: Other
  Country: CN (occurrence: CN)
  Receive Date: 20190215
  Receipt Date: 20190215
  Transmission Date: 20190418
  Serious: Yes (Other)
  Sender: FDA-Public Use
  Company Number: CN-ASTELLAS-2019US004337

PATIENT
  Age: 44 Year
  Sex: Male

DRUGS (3)
  1. PROGRAF [Suspect]
     Active Substance: TACROLIMUS\TACROLIMUS ANHYDROUS
     Indication: KIDNEY TRANSPLANT REJECTION
     Dosage: 0.5 MG, ONCE EVERY 12 HOURS
     Route: 048
     Dates: start: 201806
  2. PROGRAF [Suspect]
     Active Substance: TACROLIMUS\TACROLIMUS ANHYDROUS
     Dosage: 0.5 MG, ONCE EVERY 12 HOURS
     Route: 048
  3. PROGRAF [Suspect]
     Active Substance: TACROLIMUS\TACROLIMUS ANHYDROUS
     Dosage: 0.25 MG, ONCE DAILY
     Route: 048
     Dates: start: 20181009

REACTIONS (1)
  - Lung disorder [Recovered/Resolved with Sequelae]

NARRATIVE: CASE EVENT DATE: 20181009
